FAERS Safety Report 9018471 (Version 1)
Quarter: 2013Q1

REPORT INFORMATION
  Report Type: Spontaneous
  Country: US (occurrence: None)
  Receive Date: 20130111
  Receipt Date: 20130111
  Transmission Date: 20140127
  Serious: Yes (Other)
  Sender: FDA-Public Use
  Company Number: None

PATIENT
  Age: 31 Year
  Sex: Male
  Weight: 84.37 kg

DRUGS (1)
  1. CHANTIX [Suspect]
     Indication: NICOTINE DEPENDENCE
     Route: 048
     Dates: start: 20120809, end: 20120812

REACTIONS (12)
  - Irritability [None]
  - Condition aggravated [None]
  - Adverse drug reaction [None]
  - Mood swings [None]
  - Depression [None]
  - Dizziness [None]
  - Abnormal sensation in eye [None]
  - Suicidal ideation [None]
  - Unevaluable event [None]
  - Disturbance in attention [None]
  - Impaired driving ability [None]
  - Disturbance in attention [None]
